FAERS Safety Report 4473906-5 (Version None)
Quarter: 2004Q4

REPORT INFORMATION
  Report Type: 
  Country: None (occurrence: None)
  Receive Date: 20041008
  Receipt Date: 20041008
  Transmission Date: 20050328
  Serious: Yes (Life-Threatening)
  Sender: FDA-Public Use
  Company Number: None

PATIENT
  Age: 67 Year
  Sex: Male
  Weight: 90.7194 kg

DRUGS (7)
  1. VIRAMUNE [Suspect]
     Indication: HIV INFECTION
     Dosage: 200 MG QD X 14, THE ORAL
     Route: 048
     Dates: start: 20040622, end: 20040722
  2. COMBIVIR [Suspect]
     Indication: HIV INFECTION
     Dosage: 150 MG/300 MG BID ORAL
     Route: 048
     Dates: start: 20040622, end: 20040801
  3. FELODIPINE [Concomitant]
  4. GLYBURIDE [Concomitant]
  5. SIMVASTATIN [Concomitant]
  6. METOPROLOL [Concomitant]
  7. HYDROCHLOROTHIAZIDE [Concomitant]

REACTIONS (2)
  - ALANINE AMINOTRANSFERASE INCREASED [None]
  - ASPARTATE AMINOTRANSFERASE INCREASED [None]
